FAERS Safety Report 25988344 (Version 1)
Quarter: 2025Q4

REPORT INFORMATION
  Report Type: Spontaneous
  Country: EU (occurrence: EU)
  Receive Date: 20251103
  Receipt Date: 20251103
  Transmission Date: 20260118
  Serious: Yes (Other)
  Sender: DR REDDYS
  Company Number: None

PATIENT
  Age: 49 Year
  Sex: Female

DRUGS (2)
  1. FULVESTRANT [Suspect]
     Active Substance: FULVESTRANT
     Indication: Breast cancer
     Dosage: 2 VIALS OF 250 MG EVERY 28 DAYS
     Route: 030
     Dates: start: 20250829, end: 20251010
  2. KISQALI [Concomitant]
     Active Substance: RIBOCICLIB SUCCINATE
     Indication: Breast cancer
     Dosage: 3 TABLETS OF 200 MG PER DAY FOR 21 CONSECUTIVE DAYS FOLLOWED BY A 7-DAY TREATMENT BREAK
     Route: 048

REACTIONS (2)
  - Cough [Recovered/Resolved]
  - Sensation of foreign body [Recovered/Resolved]

NARRATIVE: CASE EVENT DATE: 20251010
